FAERS Safety Report 8960541 (Version 1)
Quarter: 2012Q4

REPORT INFORMATION
  Report Type: Spontaneous
  Country: US (occurrence: None)
  Receive Date: 20121207
  Receipt Date: 20121207
  Transmission Date: 20130627
  Serious: No
  Sender: FDA-Public Use
  Company Number: None

PATIENT
  Age: 64 Year
  Sex: Female
  Weight: 63.5 kg

DRUGS (2)
  1. CYMBALTA [Suspect]
     Indication: CHRONIC PAIN
     Dosage: started at 60mg then 90mg
     Route: 048
     Dates: start: 20121010, end: 20121030
  2. CYMBALTA [Suspect]
     Indication: CHRONIC PAIN
     Route: 048

REACTIONS (15)
  - Arthralgia [None]
  - Back pain [None]
  - Hypomania [None]
  - Suicidal ideation [None]
  - Disturbance in attention [None]
  - Insomnia [None]
  - Paranoia [None]
  - Aggression [None]
  - Withdrawal syndrome [None]
  - Influenza like illness [None]
  - Hyperhidrosis [None]
  - Tachyphrenia [None]
  - Nausea [None]
  - Decreased appetite [None]
  - Anhedonia [None]
